FAERS Safety Report 22867024 (Version 3)
Quarter: 2023Q4

REPORT INFORMATION
  Report Type: Spontaneous
  Country: US (occurrence: None)
  Receive Date: 20230825
  Receipt Date: 20231005
  Transmission Date: 20240109
  Serious: Yes (Other)
  Sender: FDA-Public Use
  Company Number: 2023A194180

PATIENT
  Age: 62 Year
  Sex: Female
  Weight: 77.6 kg

DRUGS (1)
  1. SAPHNELO [Suspect]
     Active Substance: ANIFROLUMAB-FNIA
     Indication: Systemic lupus erythematosus
     Route: 041
     Dates: start: 20230823, end: 20230823

REACTIONS (6)
  - Heart rate increased [Recovered/Resolved]
  - Urticaria [Recovered/Resolved]
  - Oropharyngeal discomfort [Recovered/Resolved]
  - Palpitations [Recovered/Resolved]
  - Pruritus [Unknown]
  - Hypersensitivity [Recovered/Resolved]

NARRATIVE: CASE EVENT DATE: 20230823
